FAERS Safety Report 7690777-4 (Version None)
Quarter: 2011Q3

REPORT INFORMATION
  Report Type: 
  Country: None (occurrence: None)
  Receive Date: 20110818
  Receipt Date: 20110812
  Transmission Date: 20111222
  Serious: Yes (Other)
  Sender: FDA-Public Use
  Company Number: ZA-SANOFI-AVENTIS-2011SA051751

PATIENT
  Sex: Male

DRUGS (4)
  1. KETEK [Suspect]
     Route: 065
     Dates: start: 20110101, end: 20110101
  2. PERINDOPRIL [Concomitant]
     Indication: HYPERTENSION
     Route: 065
  3. ROSUVASTATIN CALCIUM [Suspect]
     Dosage: STARTED ABOUT ^2 YEARS AGO^.
     Route: 065
  4. AMLOC [Concomitant]
     Indication: HYPERTENSION
     Route: 065

REACTIONS (4)
  - RHABDOMYOLYSIS [None]
  - MALAISE [None]
  - PAIN [None]
  - MYALGIA [None]
